FAERS Safety Report 13499753 (Version 3)
Quarter: 2017Q3

REPORT INFORMATION
  Report Type: Spontaneous
  Country: JP (occurrence: JP)
  Receive Date: 20170501
  Receipt Date: 20170918
  Transmission Date: 20171127
  Serious: Yes (Hospitalization)
  Sender: FDA-Public Use
  Company Number: JP-OTSUKA-2017_008336

PATIENT
  Age: 48 Year
  Sex: Female

DRUGS (4)
  1. SAMSCA [Suspect]
     Active Substance: TOLVAPTAN
     Dosage: 15 MG, DAILY DOSE
     Route: 048
     Dates: start: 201704, end: 20170420
  2. SAMSCA [Suspect]
     Active Substance: TOLVAPTAN
     Dosage: 7.5 MG, QD, IN THE EVENING
     Dates: start: 20170420
  3. SAMSCA [Suspect]
     Active Substance: TOLVAPTAN
     Indication: CONGENITAL CYSTIC KIDNEY DISEASE
     Dosage: 15 MG, QD, IN THE MORNING
     Dates: start: 20170420
  4. SAMSCA [Suspect]
     Active Substance: TOLVAPTAN
     Dosage: 60 MG, DAILY DOSE
     Route: 048
     Dates: start: 20170331, end: 201704

REACTIONS (2)
  - Subarachnoid haemorrhage [Recovering/Resolving]
  - Blood pressure increased [Recovered/Resolved]

NARRATIVE: CASE EVENT DATE: 20170421
